FAERS Safety Report 21816584 (Version 1)
Quarter: 2023Q1

REPORT INFORMATION
  Report Type: Spontaneous
  Country: US (occurrence: None)
  Receive Date: 20230104
  Receipt Date: 20230104
  Transmission Date: 20230418
  Serious: Yes (Hospitalization)
  Sender: FDA-Public Use
  Company Number: None

PATIENT
  Age: 75 Year
  Sex: Female
  Weight: 72.9 kg

DRUGS (2)
  1. FULVESTRANT [Suspect]
     Active Substance: FULVESTRANT
     Dates: end: 20221205
  2. PALBOCICLIB [Suspect]
     Active Substance: PALBOCICLIB
     Dates: end: 20221223

REACTIONS (1)
  - Pneumonia viral [None]

NARRATIVE: CASE EVENT DATE: 20221224
